FAERS Safety Report 16341075 (Version 3)
Quarter: 2019Q3

REPORT INFORMATION
  Report Type: Report from Study
  Country: US (occurrence: US)
  Receive Date: 20190522
  Receipt Date: 20190828
  Transmission Date: 20191004
  Serious: Yes (Other)
  Sender: FDA-Public Use
  Company Number: PHEH2019US021033

PATIENT
  Sex: Female

DRUGS (2)
  1. HERPES VIRUS VACCINE [Suspect]
     Active Substance: HERPES SIMPLEX VACCINE
     Indication: HERPES ZOSTER
     Route: 065
  2. COSENTYX [Suspect]
     Active Substance: SECUKINUMAB
     Indication: PSORIATIC ARTHROPATHY
     Dosage: 300 MG, QMO
     Route: 058

REACTIONS (12)
  - Blood cholesterol decreased [Unknown]
  - Fatigue [Not Recovered/Not Resolved]
  - Hypoaesthesia [Unknown]
  - Muscle twitching [Unknown]
  - Therapeutic product effect incomplete [Unknown]
  - Vaccination complication [Unknown]
  - Arthralgia [Unknown]
  - Arthropathy [Unknown]
  - Product dispensing error [Unknown]
  - Paraesthesia [Unknown]
  - Psoriatic arthropathy [Unknown]
  - Headache [Unknown]
